FAERS Safety Report 6337977-3 (Version None)
Quarter: 2009Q3

REPORT INFORMATION
  Report Type: 
  Country: None (occurrence: None)
  Receive Date: 20090902
  Receipt Date: 20090831
  Transmission Date: 20100115
  Serious: Yes (Other)
  Sender: FDA-Public Use
  Company Number: US-MERCK-0908USA05082

PATIENT
  Age: 64 Year
  Sex: Female

DRUGS (1)
  1. FOSAMAX [Suspect]
     Route: 048

REACTIONS (5)
  - OSTEONECROSIS [None]
  - OSTEOPENIA [None]
  - RESORPTION BONE INCREASED [None]
  - STOMATITIS [None]
  - THERMAL BURN [None]
